FAERS Safety Report 16324973 (Version 1)
Quarter: 2019Q2

REPORT INFORMATION
  Report Type: Spontaneous
  Country: BR (occurrence: BR)
  Receive Date: 20190517
  Receipt Date: 20190517
  Transmission Date: 20190711
  Serious: Yes (Death, Other)
  Sender: FDA-Public Use
  Company Number: BR-ASTRAZENECA-2019SE72785

PATIENT
  Age: 74 Year
  Sex: Female

DRUGS (3)
  1. ANASTROZOLE. [Suspect]
     Active Substance: ANASTROZOLE
     Indication: BREAST CANCER FEMALE
     Route: 048
  2. TAMOXIFEN [Suspect]
     Active Substance: TAMOXIFEN
     Indication: BREAST CANCER FEMALE
     Route: 048
  3. FULVESTRANT. [Suspect]
     Active Substance: FULVESTRANT
     Indication: BREAST CANCER FEMALE
     Route: 030

REACTIONS (7)
  - Gastric ulcer [Unknown]
  - Death [Fatal]
  - Cachexia [Unknown]
  - Malignant neoplasm progression [Unknown]
  - Gastrointestinal haemorrhage [Unknown]
  - Metastases to gastrointestinal tract [Unknown]
  - Metastases to bone [Unknown]

NARRATIVE: CASE EVENT DATE: 201612
